FAERS Safety Report 13166856 (Version 2)
Quarter: 2017Q1

REPORT INFORMATION
  Report Type: Spontaneous
  Country: JP (occurrence: JP)
  Receive Date: 20170131
  Receipt Date: 20170316
  Transmission Date: 20170428
  Serious: Yes (Death, Hospitalization)
  Sender: FDA-Public Use
  Company Number: JP-UCBSA-2014009027

PATIENT
  Age: 76 Year
  Sex: Male
  Weight: 53 kg

DRUGS (8)
  1. NEUPRO [Suspect]
     Active Substance: ROTIGOTINE
     Indication: MULTIPLE SYSTEM ATROPHY
     Dosage: 4 MG, ONCE DAILY (QD)
     Route: 046
     Dates: start: 2014, end: 2014
  2. NEUPRO [Suspect]
     Active Substance: ROTIGOTINE
     Indication: PARKINSON^S DISEASE
     Dosage: 2 MG, ONCE DAILY (QD)
     Route: 046
     Dates: start: 20140424, end: 2014
  3. NEUPRO [Suspect]
     Active Substance: ROTIGOTINE
     Dosage: 22.5 MG (10MG/24 HOURS), ONCE DAILY (QD)
     Route: 046
     Dates: start: 2014, end: 2014
  4. NEUPRO [Suspect]
     Active Substance: ROTIGOTINE
     Dosage: 31.5 MG (14MG/24 HOURS), ONCE DAILY (QD)
     Route: 046
     Dates: start: 2014
  5. NEUPRO [Suspect]
     Active Substance: ROTIGOTINE
     Dosage: 16 MG, ONCE DAILY (QD)
     Route: 046
     Dates: start: 2014, end: 20140730
  6. NEUPRO [Suspect]
     Active Substance: ROTIGOTINE
     Indication: OFF LABEL USE
     Dosage: 6 MG, ONCE DAILY (QD)
     Route: 046
     Dates: start: 2014, end: 2014
  7. NEUPRO [Suspect]
     Active Substance: ROTIGOTINE
     Dosage: 8 MG, ONCE DAILY (QD)
     Route: 046
     Dates: start: 2014, end: 2014
  8. NEUPRO [Suspect]
     Active Substance: ROTIGOTINE
     Dosage: 12 MG, ONCE DAILY (QD)
     Route: 046
     Dates: start: 2014, end: 2014

REACTIONS (5)
  - Hepatic function abnormal [Recovering/Resolving]
  - Eating disorder [Unknown]
  - Off label use [Unknown]
  - Death [Fatal]
  - Upper respiratory tract inflammation [Unknown]

NARRATIVE: CASE EVENT DATE: 2014
